FAERS Safety Report 4832426-6 (Version None)
Quarter: 2005Q4

REPORT INFORMATION
  Report Type: 
  Country: None (occurrence: None)
  Receive Date: 20051121
  Receipt Date: 20051024
  Transmission Date: 20060501
  Serious: Yes (Death, Hospitalization)
  Sender: FDA-Public Use
  Company Number: FR-BRISTOL-MYERS SQUIBB COMPANY-13158076

PATIENT
  Age: 53 Year
  Sex: Male
  Weight: 82 kg

DRUGS (12)
  1. TAXOL [Suspect]
     Indication: TONGUE NEOPLASM MALIGNANT STAGE UNSPECIFIED
     Route: 042
     Dates: start: 20050926, end: 20050926
  2. DILTIAZEM HCL [Concomitant]
  3. TENORMIN [Concomitant]
  4. TAHOR [Concomitant]
  5. MOPRAL [Concomitant]
  6. ZYLORIC [Concomitant]
  7. LEVOTHYROX [Concomitant]
  8. CEBUTID [Concomitant]
  9. POLARAMINE [Concomitant]
     Dates: start: 20050905, end: 20050926
  10. DEXAMETHASONE [Concomitant]
     Dates: start: 20050905, end: 20050926
  11. RANITIDINE [Concomitant]
     Dates: start: 20050905, end: 20050926
  12. ONDANSETRON [Concomitant]
     Dates: start: 20050905, end: 20050926

REACTIONS (1)
  - INTERSTITIAL LUNG DISEASE [None]
